FAERS Safety Report 13689031 (Version 3)
Quarter: 2017Q4

REPORT INFORMATION
  Report Type: Spontaneous
  Country: JP (occurrence: JP)
  Receive Date: 20170626
  Receipt Date: 20171122
  Transmission Date: 20180320
  Serious: Yes (Other)
  Sender: FDA-Public Use
  Company Number: JP-009507513-1706JPN001496J

PATIENT
  Age: 69 Year
  Sex: Female
  Weight: 43 kg

DRUGS (4)
  1. CUBICIN [Suspect]
     Active Substance: DAPTOMYCIN
     Indication: INFECTIOUS PLEURAL EFFUSION
     Dosage: 350 MG, QD
     Route: 041
     Dates: start: 20170611, end: 20170624
  2. CUBICIN [Suspect]
     Active Substance: DAPTOMYCIN
     Dosage: 300 MG, QD
     Route: 041
     Dates: start: 20170625, end: 20170630
  3. HEPARIN NA LOCK [Suspect]
     Active Substance: HEPARIN SODIUM
     Indication: CATHETER MANAGEMENT
     Dosage: 10 IU, BID
     Route: 042
     Dates: start: 20170529, end: 20170615
  4. OPDIVO [Concomitant]
     Active Substance: NIVOLUMAB
     Dosage: UNK
     Route: 051

REACTIONS (1)
  - Heparin-induced thrombocytopenia [Recovered/Resolved]

NARRATIVE: CASE EVENT DATE: 20170612
